FAERS Safety Report 22011469 (Version 1)
Quarter: 2023Q1

REPORT INFORMATION
  Report Type: Spontaneous
  Country: CN (occurrence: CN)
  Receive Date: 20230220
  Receipt Date: 20230220
  Transmission Date: 20230418
  Serious: Yes (Life-Threatening)
  Sender: FDA-Public Use
  Company Number: CN-GE HEALTHCARE-2023CSU000944

PATIENT
  Age: 72 Year
  Sex: Male

DRUGS (3)
  1. OMNISCAN [Suspect]
     Active Substance: GADODIAMIDE
     Indication: Abdomen scan
     Dosage: 15 ML, SINGLE
     Route: 042
     Dates: start: 20230209, end: 20230209
  2. OMNISCAN [Suspect]
     Active Substance: GADODIAMIDE
     Indication: Gastric cancer
  3. INDAPAMIDE [Concomitant]
     Active Substance: INDAPAMIDE
     Indication: Hypertension
     Dosage: UNK
     Route: 048

REACTIONS (5)
  - Cardio-respiratory arrest [Recovered/Resolved]
  - Loss of consciousness [Recovered/Resolved]
  - Tachypnoea [Recovering/Resolving]
  - Anaphylactic shock [Recovering/Resolving]
  - Palpitations [Recovering/Resolving]

NARRATIVE: CASE EVENT DATE: 20230209
